FAERS Safety Report 9473539 (Version 1)
Quarter: 2013Q3

REPORT INFORMATION
  Report Type: Spontaneous
  Country: US (occurrence: US)
  Receive Date: 20130823
  Receipt Date: 20130823
  Transmission Date: 20140515
  Serious: No
  Sender: FDA-Public Use
  Company Number: US-GALDERMA-US13001789

PATIENT
  Age: 49 Year
  Sex: Female
  Weight: 54 kg

DRUGS (11)
  1. METROGEL (METRONIDAZOLE) GEL, 1% [Suspect]
     Indication: ROSACEA
     Route: 061
     Dates: start: 20130513, end: 20130603
  2. METROGEL (METRONIDAZOLE) GEL, 1% [Suspect]
     Route: 061
     Dates: start: 20130604, end: 20130606
  3. CARAC [Concomitant]
     Indication: PRECANCEROUS SKIN LESION
     Dosage: 0.5%
     Route: 061
     Dates: start: 20130529
  4. ORMEDIC BALANCING FACIAL CLEANSER [Concomitant]
     Indication: THERAPEUTIC SKIN CARE TOPICAL
     Route: 061
     Dates: start: 2011
  5. LUNESTA [Concomitant]
     Indication: INSOMNIA
     Route: 048
  6. MELATONIN [Concomitant]
     Indication: INSOMNIA
     Route: 060
  7. PROGESTERONE [Concomitant]
     Route: 061
  8. L-THEANINE [Concomitant]
     Route: 048
  9. HERBAL TRG [Concomitant]
     Route: 048
  10. ORMEDIC TWO STEP ANTIOXIDANT VITAL PEPTIDE CREAM [Concomitant]
     Route: 061
  11. MAC PREP AND PRIME FACE PROTECT SPF 50 [Concomitant]
     Indication: PROPHYLAXIS AGAINST SOLAR RADIATION
     Route: 061

REACTIONS (3)
  - Skin burning sensation [Recovering/Resolving]
  - Paraesthesia [Recovering/Resolving]
  - Inappropriate schedule of drug administration [Recovered/Resolved]
